FAERS Safety Report 4486424-5 (Version None)
Quarter: 2004Q4

REPORT INFORMATION
  Report Type: 
  Country: None (occurrence: None)
  Receive Date: 20041027
  Receipt Date: 20041015
  Transmission Date: 20050328
  Serious: Yes (Other)
  Sender: FDA-Public Use
  Company Number: FR-BRISTOL-MYERS SQUIBB COMPANY-12736153

PATIENT
  Age: 58 Year
  Sex: Male

DRUGS (8)
  1. MODECATE INJ [Suspect]
     Route: 030
     Dates: start: 19830101
  2. TEGRETOL [Concomitant]
     Route: 048
  3. PHENOBARBITAL TAB [Concomitant]
     Route: 048
  4. NOZINAN [Concomitant]
     Route: 048
  5. LEPTICUR [Concomitant]
     Route: 048
  6. ATHYMIL [Concomitant]
     Route: 048
  7. COVERSYL [Concomitant]
     Route: 048
  8. AMLOR [Concomitant]
     Route: 048

REACTIONS (3)
  - DIZZINESS POSTURAL [None]
  - DYSKINESIA [None]
  - MUSCLE RIGIDITY [None]
